FAERS Safety Report 10508980 (Version 1)
Quarter: 2014Q4

REPORT INFORMATION
  Report Type: Report from Study
  Country: US (occurrence: US)
  Receive Date: 20141009
  Receipt Date: 20141009
  Transmission Date: 20150528
  Serious: Yes (Other)
  Sender: FDA-Public Use
  Company Number: PHEH2014US019573

PATIENT
  Sex: Female

DRUGS (2)
  1. GILENYA [Suspect]
     Active Substance: FINGOLIMOD HYDROCHLORIDE
  2. ACTHAR [Suspect]
     Active Substance: CORTICOTROPIN

REACTIONS (2)
  - Herpes zoster [Unknown]
  - Systemic lupus erythematosus [Unknown]
